FAERS Safety Report 7435522-2 (Version None)
Quarter: 2011Q2

REPORT INFORMATION
  Report Type: 
  Country: None (occurrence: None)
  Receive Date: 20110425
  Receipt Date: 20110413
  Transmission Date: 20111010
  Serious: Yes (Hospitalization)
  Sender: FDA-Public Use
  Company Number: JP-BRISTOL-MYERS SQUIBB COMPANY-15690753

PATIENT
  Age: 78 Year
  Sex: Male
  Weight: 62 kg

DRUGS (1)
  1. FUNGIZONE [Suspect]
     Indication: SINUSITIS FUNGAL
     Dates: start: 20090101, end: 20090101

REACTIONS (1)
  - CHOLECYSTITIS [None]
